FAERS Safety Report 21193998 (Version 1)
Quarter: 2022Q3

REPORT INFORMATION
  Report Type: Spontaneous
  Country: FR (occurrence: FR)
  Receive Date: 20220810
  Receipt Date: 20220810
  Transmission Date: 20221027
  Serious: Yes (Other)
  Sender: FDA-Public Use
  Company Number: FR-AFSSAPS-AVNT20220512

PATIENT
  Age: 69 Year
  Sex: Female

DRUGS (3)
  1. TRAMADOL [Suspect]
     Active Substance: TRAMADOL
     Indication: Product used for unknown indication
     Dosage: 100 MILLIGRAM, 3 TIMES A DAY
     Route: 048
  2. ALCOHOL [Suspect]
     Active Substance: ALCOHOL
     Indication: Product used for unknown indication
     Dosage: 1 BOTTLE OF WHISKEY OF 70 CL OVER 2 DAYS
     Route: 048
  3. VALIUM [Suspect]
     Active Substance: DIAZEPAM
     Indication: Product used for unknown indication
     Dosage: 1 TAB MORNING AND EVENING
     Route: 048

REACTIONS (1)
  - Drug dependence [Not Recovered/Not Resolved]
